FAERS Safety Report 8360360-6 (Version None)
Quarter: 2012Q2

REPORT INFORMATION
  Report Type: 
  Country: None (occurrence: None)
  Receive Date: 20120515
  Receipt Date: 20120509
  Transmission Date: 20120825
  Serious: Yes (Death, Life-Threatening, Hospitalization)
  Sender: FDA-Public Use
  Company Number: DE-SANOFI-AVENTIS-2012SA020842

PATIENT
  Age: 70 Year
  Sex: Female
  Weight: 96 kg

DRUGS (12)
  1. IBUPROFEN [Concomitant]
     Indication: PAIN
     Route: 048
  2. RAMIPRIL [Concomitant]
     Indication: HYPERTENSION
     Dosage: 1 DF = 5/25MG
     Route: 048
  3. BISOPROLOL FUMARATE [Concomitant]
     Indication: HYPERTENSION
     Route: 048
  4. TAXOTERE [Suspect]
     Indication: BREAST CANCER
     Route: 042
     Dates: start: 20120314, end: 20120314
  5. AMLODIPINE BESYLATE [Concomitant]
     Indication: HYPERTENSION
     Route: 048
  6. MIRTAZAPINE [Concomitant]
     Indication: DEPRESSION
     Route: 048
  7. ANTICHOLINERGICS [Concomitant]
     Route: 048
  8. LEVOTHYROXINE SODIUM [Concomitant]
     Indication: GOITRE
     Route: 048
  9. TRAMABETA [Concomitant]
     Indication: PAIN
     Route: 048
  10. CYCLOPHOSPHAMIDE [Concomitant]
     Indication: BREAST CANCER
     Route: 065
     Dates: start: 20120319, end: 20120323
  11. PRILOSEC [Concomitant]
     Indication: PROPHYLAXIS
     Route: 048
  12. ZOPICLON [Concomitant]
     Indication: SLEEP DISORDER
     Route: 065

REACTIONS (2)
  - RECTAL PERFORATION [None]
  - SEPSIS [None]
